FAERS Safety Report 8023041-4 (Version None)
Quarter: 2012Q1

REPORT INFORMATION
  Report Type: 
  Country: None (occurrence: None)
  Receive Date: 20120104
  Receipt Date: 20111226
  Transmission Date: 20120608
  Serious: Yes (Other)
  Sender: FDA-Public Use
  Company Number: CO-ASTRAZENECA-2011SE78780

PATIENT
  Age: 30 Year
  Sex: Male
  Weight: 80 kg

DRUGS (2)
  1. BUPIVACAINE HCL [Suspect]
     Indication: LOCAL ANAESTHESIA
     Route: 053
  2. LIDOCAINE [Suspect]
     Indication: LOCAL ANAESTHESIA
     Route: 053

REACTIONS (2)
  - GRAND MAL CONVULSION [None]
  - SINUS TACHYCARDIA [None]
